FAERS Safety Report 5419966-6 (Version None)
Quarter: 2007Q3

REPORT INFORMATION
  Report Type: 
  Country: None (occurrence: None)
  Receive Date: 20070718
  Receipt Date: 20060901
  Transmission Date: 20080115
  Serious: Yes (Other)
  Sender: FDA-Public Use
  Company Number: 2006105603

PATIENT
  Age: 69 Year
  Sex: Female
  Weight: 89.3586 kg

DRUGS (1)
  1. CELEBREX [Suspect]
     Indication: ARTHRITIS
     Dosage: 200 MG (200 MG, 1 IN 1D)
     Dates: start: 20060801, end: 20060801

REACTIONS (1)
  - SWELLING [None]
